FAERS Safety Report 10432143 (Version 1)
Quarter: 2014Q3

REPORT INFORMATION
  Report Type: Spontaneous
  Country: US (occurrence: US)
  Receive Date: 20140905
  Receipt Date: 20140905
  Transmission Date: 20150326
  Serious: Yes (Death, Other)
  Sender: FDA-Public Use
  Company Number: US-PAR PHARMACEUTICAL, INC-2014SCPR009373

PATIENT

DRUGS (1)
  1. DILTIAZEM HCL [Suspect]
     Active Substance: DILTIAZEM HYDROCHLORIDE
     Indication: PRODUCT USED FOR UNKNOWN INDICATION
     Dosage: UNK UNK, UNKNOWN
     Route: 048

REACTIONS (10)
  - Shock [Unknown]
  - Peripheral ischaemia [Unknown]
  - Necrosis ischaemic [Unknown]
  - Overdose [Fatal]
  - Respiratory failure [Fatal]
  - Atrioventricular block complete [Unknown]
  - Abdominal compartment syndrome [Unknown]
  - Death [Fatal]
  - Pulseless electrical activity [Unknown]
  - Acidosis [Fatal]
